FAERS Safety Report 25132942 (Version 1)
Quarter: 2025Q1

REPORT INFORMATION
  Report Type: Spontaneous
  Country: FR (occurrence: FR)
  Receive Date: 20250328
  Receipt Date: 20250328
  Transmission Date: 20250408
  Serious: Yes (Hospitalization)
  Sender: ACCORD
  Company Number: None

PATIENT
  Age: 78 Year
  Sex: Male
  Weight: 63 kg

DRUGS (18)
  1. ATORVASTATIN [Suspect]
     Active Substance: ATORVASTATIN
     Indication: Prophylaxis
     Dates: start: 20250113, end: 20250120
  2. VISIPAQUE [Suspect]
     Active Substance: IODIXANOL
     Indication: Angiocardiogram
     Dates: start: 20250113, end: 20250113
  3. PROTAMINE [Suspect]
     Active Substance: PROTAMINE
     Indication: Angiocardiogram
     Dates: start: 20250115, end: 20250115
  4. TICAGRELOR [Suspect]
     Active Substance: TICAGRELOR
     Indication: Myocardial infarction
     Dates: start: 20250113, end: 20250117
  5. PERINDOPRIL [Suspect]
     Active Substance: PERINDOPRIL
     Indication: Hypertension
     Dates: start: 20250114, end: 20250120
  6. BISOPROLOL [Concomitant]
     Active Substance: BISOPROLOL
  7. ASPIRIN DL-LYSINE [Concomitant]
     Active Substance: ASPIRIN DL-LYSINE
     Dates: start: 20250113, end: 20250113
  8. RAMIPRIL [Concomitant]
     Active Substance: RAMIPRIL
     Dates: start: 20250113, end: 20250114
  9. XYLOCAINE [Concomitant]
     Active Substance: LIDOCAINE HYDROCHLORIDE
     Indication: Angiocardiogram
     Dates: start: 20250113, end: 20250113
  10. KARDEGIC [Concomitant]
     Active Substance: ASPIRIN DL-LYSINE
     Indication: Myocardial infarction
     Dosage: STRENGTH: 75 MG, POWDER FOR ORAL SOLUTION IN SACHET-DOSE
     Dates: start: 20250113, end: 20250122
  11. HEPARIN [Concomitant]
     Active Substance: HEPARIN SODIUM
     Dates: start: 20250113, end: 20250113
  12. VERAPAMIL HYDROCHLORIDE [Concomitant]
     Active Substance: VERAPAMIL HYDROCHLORIDE
     Dates: start: 20250113, end: 20250113
  13. ISOSORBIDE [Concomitant]
     Active Substance: ISOSORBIDE
     Dates: start: 20250113, end: 20250113
  14. LANSOPRAZOLE [Concomitant]
     Active Substance: LANSOPRAZOLE
     Dates: start: 20250115, end: 20250122
  15. VISIPAQUE [Suspect]
     Active Substance: IODIXANOL
     Indication: Angiocardiogram
     Dates: start: 20250115, end: 20250115
  16. XYLOCAINE [Concomitant]
     Active Substance: LIDOCAINE HYDROCHLORIDE
     Indication: Angiocardiogram
     Dates: start: 20250115, end: 20250115
  17. HEPARIN [Concomitant]
     Active Substance: HEPARIN SODIUM
     Dates: start: 20250113, end: 20250113
  18. HEPARIN [Concomitant]
     Active Substance: HEPARIN SODIUM
     Dates: start: 20250115

REACTIONS (2)
  - Eosinophilia [Not Recovered/Not Resolved]
  - Rash [Recovering/Resolving]

NARRATIVE: CASE EVENT DATE: 20250115
